FAERS Safety Report 4382983-1 (Version None)
Quarter: 2004Q2

REPORT INFORMATION
  Report Type: 
  Country: None (occurrence: None)
  Receive Date: 20040617
  Receipt Date: 20040611
  Transmission Date: 20050107
  Serious: Yes (Life-Threatening)
  Sender: FDA-Public Use
  Company Number: FR-SHR-03-009936

PATIENT
  Age: 58 Year
  Sex: Female
  Weight: 50.5 kg

DRUGS (2)
  1. CLIMARA [Suspect]
     Indication: MENOPAUSE
     Dosage: 50 UG CONT, TRANSDERMAL
     Route: 062
     Dates: start: 20000608, end: 20020729
  2. MLS-LNG-IUS (MLS-LNG-IUS) MLS-LNG-IUS (LEVONORGESTREL) IUS [Suspect]
     Indication: MENOPAUSE
     Dosage: 10 UG, CONT, INTRA-UTERINE
     Route: 015
     Dates: start: 20000608, end: 20020729

REACTIONS (2)
  - BREAST CANCER FEMALE [None]
  - METASTASES TO LYMPH NODES [None]
